FAERS Safety Report 20186884 (Version 1)
Quarter: 2021Q4

REPORT INFORMATION
  Report Type: Spontaneous
  Country: US (occurrence: None)
  Receive Date: 20211214
  Receipt Date: 20211214
  Transmission Date: 20220304
  Serious: Yes (Hospitalization)
  Sender: FDA-Public Use
  Company Number: None

PATIENT
  Sex: Female

DRUGS (27)
  1. REPATHA [Suspect]
     Active Substance: EVOLOCUMAB
     Indication: Hypercholesterolaemia
     Dosage: FREQUENCY : EVERY OTHER WEEK;?
     Route: 058
     Dates: start: 20190327
  2. ALBUTEROL [Concomitant]
     Active Substance: ALBUTEROL
  3. BACLOFEN [Concomitant]
     Active Substance: BACLOFEN
  4. BYSTOLIC [Concomitant]
     Active Substance: NEBIVOLOL HYDROCHLORIDE
  5. FLORICET [Concomitant]
  6. SACCHAROMYCES CEREVISIAE [Concomitant]
     Active Substance: SACCHAROMYCES CEREVISIAE
  7. FLOVENT HFA AER [Concomitant]
  8. FLUTICASONE [Concomitant]
     Active Substance: FLUTICASONE
  9. FUROSEMIDE [Concomitant]
     Active Substance: FUROSEMIDE
  10. GABAPENTIN [Concomitant]
     Active Substance: GABAPENTIN
  11. IMURAN [Concomitant]
     Active Substance: AZATHIOPRINE
  12. LIDOCAINE PAD [Concomitant]
  13. MYRBETRIQ [Concomitant]
     Active Substance: MIRABEGRON
  14. NOVOLOG MIX INJ [Concomitant]
  15. OMEGA 3 [Concomitant]
     Active Substance: CAPSAICIN
  16. OMEPRAZOLE [Concomitant]
     Active Substance: OMEPRAZOLE
  17. POTASSIUM POW [Concomitant]
  18. PREDNISONE [Concomitant]
     Active Substance: PREDNISONE
  19. PROAIR HFA AER [Concomitant]
  20. PROBIOTICS NOS [Concomitant]
     Active Substance: PROBIOTICS NOS
  21. PYRIDOSTIGM [Concomitant]
  22. SALINE NASAL SPR [Concomitant]
  23. SUCRALFATE [Concomitant]
     Active Substance: SUCRALFATE
  24. TUMS ULTA CHW [Concomitant]
  25. UROGESIC [Concomitant]
  26. VITAMIN D [Concomitant]
     Active Substance: VITAMIN D NOS
  27. ZYRTEC [Concomitant]
     Active Substance: CETIRIZINE HYDROCHLORIDE

REACTIONS (1)
  - Product dose omission issue [None]
